FAERS Safety Report 7494802-5 (Version None)
Quarter: 2011Q2

REPORT INFORMATION
  Report Type: 
  Country: None (occurrence: None)
  Receive Date: 20110520
  Receipt Date: 20110513
  Transmission Date: 20111010
  Serious: Yes (Hospitalization, Disabling, Other)
  Sender: FDA-Public Use
  Company Number: A0927320A

PATIENT
  Age: 58 Year
  Sex: Female

DRUGS (3)
  1. ISENTRESS [Concomitant]
     Indication: HIV INFECTION
     Dates: start: 20110330
  2. KALETRA [Concomitant]
     Indication: HIV INFECTION
     Dates: start: 20110330
  3. SELZENTRY [Suspect]
     Indication: HIV INFECTION
     Route: 048
     Dates: start: 20110330, end: 20110418

REACTIONS (9)
  - SKIN BURNING SENSATION [None]
  - BLOOD ALKALINE PHOSPHATASE INCREASED [None]
  - RASH [None]
  - HYPOAESTHESIA ORAL [None]
  - HYPERSENSITIVITY [None]
  - GAMMA-GLUTAMYLTRANSFERASE INCREASED [None]
  - VISUAL ACUITY REDUCED [None]
  - DYSPHAGIA [None]
  - PARAESTHESIA [None]
